FAERS Safety Report 17717650 (Version 2)
Quarter: 2020Q3

REPORT INFORMATION
  Report Type: Spontaneous
  Country: US (occurrence: US)
  Receive Date: 20200428
  Receipt Date: 20200812
  Transmission Date: 20201102
  Serious: No
  Sender: FDA-Public Use
  Company Number: US-CYCLE PHARMACEUTICALS LTD-2020-CYC-000007

PATIENT
  Age: 20 Year
  Sex: Female
  Weight: 66.3 kg

DRUGS (1)
  1. NITYR [Suspect]
     Active Substance: NITISINONE
     Indication: PRODUCT USED FOR UNKNOWN INDICATION
     Dosage: 15 MG IN AM AND 10 MG IN PM (25 MG / DAY)
     Route: 048
     Dates: start: 20200116

REACTIONS (2)
  - Prescribed underdose [Unknown]
  - Off label use [Unknown]
